FAERS Safety Report 21954533 (Version 1)
Quarter: 2023Q1

REPORT INFORMATION
  Report Type: Spontaneous
  Country: US (occurrence: US)
  Receive Date: 20230205
  Receipt Date: 20230205
  Transmission Date: 20230418
  Serious: No
  Sender: FDA-Public Use
  Company Number: US-ELI_LILLY_AND_COMPANY-US202302001833

PATIENT
  Sex: Female

DRUGS (1)
  1. TRULICITY [Suspect]
     Active Substance: DULAGLUTIDE
     Indication: Insulin resistance
     Dosage: 1.5 MG, UNKNOWN
     Route: 058
     Dates: start: 202211

REACTIONS (3)
  - Abdominal distension [Unknown]
  - Vomiting [Unknown]
  - Nausea [Unknown]
